FAERS Safety Report 5635126-8 (Version None)
Quarter: 2008Q1

REPORT INFORMATION
  Report Type: 
  Country: None (occurrence: None)
  Receive Date: 20080131
  Receipt Date: 20071113
  Transmission Date: 20080703
  Serious: No
  Sender: FDA-Public Use
  Company Number: 163-21880-07110776

PATIENT
  Age: 57 Year
  Sex: Female

DRUGS (4)
  1. REVLIMID [Suspect]
     Indication: MULTIPLE MYELOMA
     Dosage: 15 MG, QD X21 DAYS, ORAL ; 25 MG, QD X21 DAYS ,ORAL ; QOD WITH 7 DAYS OFF, ORAL
     Route: 048
     Dates: start: 20070112
  2. REVLIMID [Suspect]
     Indication: MULTIPLE MYELOMA
     Dosage: 15 MG, QD X21 DAYS, ORAL ; 25 MG, QD X21 DAYS ,ORAL ; QOD WITH 7 DAYS OFF, ORAL
     Route: 048
     Dates: start: 20070823
  3. REVLIMID [Suspect]
     Indication: MULTIPLE MYELOMA
     Dosage: 15 MG, QD X21 DAYS, ORAL ; 25 MG, QD X21 DAYS ,ORAL ; QOD WITH 7 DAYS OFF, ORAL
     Route: 048
     Dates: start: 20071113
  4. DEXAMETHASONE TAB [Concomitant]

REACTIONS (2)
  - HYPOAESTHESIA [None]
  - SLEEP APNOEA SYNDROME [None]
